FAERS Safety Report 11779089 (Version 1)
Quarter: 2015Q4

REPORT INFORMATION
  Report Type: Spontaneous
  Country: ES (occurrence: ES)
  Receive Date: 20151125
  Receipt Date: 20151125
  Transmission Date: 20160304
  Serious: Yes (Other)
  Sender: FDA-Public Use
  Company Number: ES-BANPHARM-20154452

PATIENT
  Sex: Male

DRUGS (5)
  1. AMOXICILLIN-CLAVULANIC ACID [Concomitant]
     Active Substance: AMOXICILLIN\CLAVULANIC ACID
  2. IBUPROFEN UNKNOWN PRODUCT [Suspect]
     Active Substance: IBUPROFEN
  3. MEPERIDINE HYDROCHLORIDE. [Concomitant]
     Active Substance: MEPERIDINE HYDROCHLORIDE
  4. PARACETAMOL [Suspect]
     Active Substance: ACETAMINOPHEN
  5. INDOMETHACIN. [Suspect]
     Active Substance: INDOMETHACIN

REACTIONS (1)
  - Anaphylactic reaction [Recovered/Resolved]
